FAERS Safety Report 23693358 (Version 2)
Quarter: 2024Q2

REPORT INFORMATION
  Report Type: Spontaneous
  Country: US (occurrence: US)
  Receive Date: 20240401
  Receipt Date: 20240405
  Transmission Date: 20240715
  Serious: Yes (Other)
  Sender: FDA-Public Use
  Company Number: US-PFIZER INC-PV202400041009

PATIENT

DRUGS (4)
  1. SPIRONOLACTONE [Suspect]
     Active Substance: SPIRONOLACTONE
     Dosage: UNK
  2. ENTRESTO [Suspect]
     Active Substance: SACUBITRIL\VALSARTAN
     Dosage: UNK
  3. CARVEDILOL [Suspect]
     Active Substance: CARVEDILOL
     Dosage: UNK
  4. FARXIGA [Suspect]
     Active Substance: DAPAGLIFLOZIN PROPANEDIOL
     Dosage: UNK

REACTIONS (5)
  - Somnolence [Unknown]
  - Fatigue [Unknown]
  - Cough [Recovered/Resolved]
  - Heart rate abnormal [Unknown]
  - Dyspnoea [Unknown]
